FAERS Safety Report 5149874-X (Version None)
Quarter: 2006Q4

REPORT INFORMATION
  Report Type: 
  Country: None (occurrence: None)
  Receive Date: 20060918
  Receipt Date: 20051221
  Transmission Date: 20070319
  Serious: Yes (Other)
  Sender: FDA-Public Use
  Company Number: US-JNJFOC-20051205616

PATIENT
  Age: 20 Year
  Sex: Female
  Weight: 65.7716 kg

DRUGS (1)
  1. TOPAMAX [Suspect]
     Indication: MIGRAINE
     Dosage: 400 MG, 1 IN 1 DAY, ORAL
     Route: 048

REACTIONS (5)
  - GASTROINTESTINAL DISORDER [None]
  - HALLUCINATION [None]
  - LOSS OF CONSCIOUSNESS [None]
  - MALAISE [None]
  - WEIGHT DECREASED [None]
